FAERS Safety Report 17877597 (Version 4)
Quarter: 2022Q2

REPORT INFORMATION
  Report Type: Spontaneous
  Country: US (occurrence: US)
  Receive Date: 20200609
  Receipt Date: 20220523
  Transmission Date: 20220721
  Serious: No
  Sender: FDA-Public Use
  Company Number: NVSC2020US160937

PATIENT
  Sex: Female

DRUGS (3)
  1. TAFINLAR [Suspect]
     Active Substance: DABRAFENIB MESYLATE
     Indication: Thyroid cancer
     Dosage: 100 MG, Q12H
     Route: 048
     Dates: start: 20200430
  2. MEKINIST [Suspect]
     Active Substance: TRAMETINIB DIMETHYL SULFOXIDE
     Indication: Thyroid cancer
     Dosage: 1 MG, QD
     Route: 048
     Dates: start: 20200430
  3. MEKINIST [Suspect]
     Active Substance: TRAMETINIB DIMETHYL SULFOXIDE
     Dosage: 0.5 MG, BID
     Route: 048
     Dates: start: 20200430

REACTIONS (4)
  - Musculoskeletal stiffness [Unknown]
  - Visual impairment [Unknown]
  - Cough [Unknown]
  - Arthralgia [Unknown]
